FAERS Safety Report 10683473 (Version 2)
Quarter: 2015Q1

REPORT INFORMATION
  Report Type: Spontaneous
  Country: FR (occurrence: IT)
  Receive Date: 20141230
  Receipt Date: 20150204
  Transmission Date: 20150720
  Serious: Yes (Disabling)
  Sender: FDA-Public Use
  Company Number: IT-FRI-1000073177

PATIENT
  Age: 41 Year
  Sex: Male

DRUGS (2)
  1. ACAMPROSATE [Suspect]
     Active Substance: ACAMPROSATE
     Indication: ABSTAINS FROM ALCOHOL
     Dosage: 1998 MG
     Route: 048
     Dates: start: 20140107, end: 20140917
  2. DISULFIRAM. [Suspect]
     Active Substance: DISULFIRAM
     Indication: ABSTAINS FROM ALCOHOL
     Dosage: 200 MG
     Route: 048
     Dates: start: 20140114, end: 20140422

REACTIONS (1)
  - Aspartate aminotransferase increased [Recovered/Resolved]

NARRATIVE: CASE EVENT DATE: 20140415
